FAERS Safety Report 20950611 (Version 3)
Quarter: 2025Q1

REPORT INFORMATION
  Report Type: Spontaneous
  Country: IT (occurrence: IT)
  Receive Date: 20220613
  Receipt Date: 20250113
  Transmission Date: 20250409
  Serious: Yes (Hospitalization, Other)
  Sender: GILEAD
  Company Number: None

PATIENT
  Age: 55 Year
  Sex: Male

DRUGS (18)
  1. EPCLUSA [Suspect]
     Active Substance: SOFOSBUVIR\VELPATASVIR
     Indication: Product used for unknown indication
     Route: 048
     Dates: start: 20220506, end: 20220601
  2. ETOPOSIDE [Suspect]
     Active Substance: ETOPOSIDE
     Indication: Non-Hodgkin^s lymphoma
     Route: 042
     Dates: start: 20220517, end: 20220519
  3. ETOPOSIDE [Suspect]
     Active Substance: ETOPOSIDE
     Route: 050
     Dates: start: 20220517, end: 20220519
  4. DOXORUBICIN [Suspect]
     Active Substance: DOXORUBICIN
     Indication: Non-Hodgkin^s lymphoma
     Route: 050
     Dates: start: 20220517, end: 20220519
  5. VINCRISTINE [Suspect]
     Active Substance: VINCRISTINE
     Indication: Non-Hodgkin^s lymphoma
     Route: 042
     Dates: start: 20220517, end: 20220519
  6. VINCRISTINE [Suspect]
     Active Substance: VINCRISTINE
     Route: 050
     Dates: start: 20220517, end: 20220519
  7. CYCLOPHOSPHAMIDE [Suspect]
     Active Substance: CYCLOPHOSPHAMIDE
     Indication: Non-Hodgkin^s lymphoma
     Route: 042
     Dates: start: 20220517, end: 20220519
  8. CYCLOPHOSPHAMIDE [Suspect]
     Active Substance: CYCLOPHOSPHAMIDE
     Route: 050
     Dates: start: 20220517, end: 20220519
  9. METHOTREXATE [Suspect]
     Active Substance: METHOTREXATE
     Indication: Non-Hodgkin^s lymphoma
     Route: 024
     Dates: start: 20220516, end: 20220516
  10. METHOTREXATE [Suspect]
     Active Substance: METHOTREXATE
     Route: 024
     Dates: start: 20220516, end: 20220516
  11. CYTARABINE [Suspect]
     Active Substance: CYTARABINE
     Indication: Non-Hodgkin^s lymphoma
     Route: 024
     Dates: start: 20220516, end: 20220516
  12. CYTARABINE [Suspect]
     Active Substance: CYTARABINE
     Route: 024
     Dates: start: 20220516, end: 20220516
  13. BIKTARVY [Concomitant]
     Active Substance: BICTEGRAVIR SODIUM\EMTRICITABINE\TENOFOVIR ALAFENAMIDE FUMARATE
     Route: 048
  14. PANTOPRAZOLE [Concomitant]
     Active Substance: PANTOPRAZOLE
  15. PANTOPRAZOLE [Concomitant]
     Active Substance: PANTOPRAZOLE
     Route: 065
  16. BACTRIM [Concomitant]
     Active Substance: SULFAMETHOXAZOLE\TRIMETHOPRIM
     Indication: Chronic hepatitis C
     Dosage: 1 {DF}
     Route: 065
  17. FOLINA [Concomitant]
  18. FOLINA [Concomitant]
     Route: 065

REACTIONS (2)
  - Leukopenia [Unknown]
  - Pyrexia [Unknown]

NARRATIVE: CASE EVENT DATE: 20220524
